FAERS Safety Report 8307130-2 (Version None)
Quarter: 2012Q2

REPORT INFORMATION
  Report Type: 
  Country: None (occurrence: None)
  Receive Date: 20120424
  Receipt Date: 20120417
  Transmission Date: 20120825
  Serious: Yes (Other)
  Sender: FDA-Public Use
  Company Number: US-PFIZER INC-2012077267

PATIENT
  Sex: Male
  Weight: 104.31 kg

DRUGS (3)
  1. CADUET [Suspect]
     Indication: BLOOD CHOLESTEROL INCREASED
  2. CADUET [Suspect]
     Indication: HYPERTENSION
     Dosage: 10/20MG DAILY
     Route: 048
  3. INSULIN [Concomitant]
     Indication: DIABETES MELLITUS
     Dosage: UNKNOWN DOSE 4 SHOTS DAILY

REACTIONS (2)
  - PAIN [None]
  - PNEUMONIA [None]
